FAERS Safety Report 4843050-3 (Version None)
Quarter: 2005Q4

REPORT INFORMATION
  Report Type: 
  Country: None (occurrence: None)
  Receive Date: 20051130
  Receipt Date: 20051121
  Transmission Date: 20060501
  Serious: Yes (Other)
  Sender: FDA-Public Use
  Company Number: 2005-11-0025

PATIENT
  Age: 60 Year
  Sex: Female
  Weight: 48 kg

DRUGS (4)
  1. PEG-INTRON [Suspect]
     Indication: HEPATITIS C
     Dosage: 100 MCG QW SUBCUTANEOUS
     Route: 058
     Dates: start: 20050125, end: 20051024
  2. REBETOL [Suspect]
     Indication: HEPATITIS C
     Dosage: 600-400* MG ORAL
     Route: 048
     Dates: start: 20050125, end: 20050312
  3. REBETOL [Suspect]
     Indication: HEPATITIS C
     Dosage: 600-400* MG ORAL
     Route: 048
     Dates: start: 20050314, end: 20051024
  4. JUVELA NICOTINATE [Concomitant]

REACTIONS (8)
  - CEREBRAL HAEMORRHAGE [None]
  - COMMUNICATION DISORDER [None]
  - CONDITION AGGRAVATED [None]
  - GASTROINTESTINAL HAEMORRHAGE [None]
  - HAEMOGLOBIN DECREASED [None]
  - HYPERTENSION [None]
  - SWELLING FACE [None]
  - VISUAL DISTURBANCE [None]
